FAERS Safety Report 5962037-0 (Version None)
Quarter: 2008Q4

REPORT INFORMATION
  Report Type: 
  Country: None (occurrence: None)
  Receive Date: 20081121
  Receipt Date: 20081111
  Transmission Date: 20090506
  Serious: Yes (Death, Hospitalization, Other)
  Sender: FDA-Public Use
  Company Number: US-WYE-H06806808

PATIENT
  Age: 25 Year
  Sex: Male

DRUGS (11)
  1. EFFEXOR [Suspect]
     Dosage: UNKNOWN
  2. PROZAC [Suspect]
     Dosage: UNKNOWN
  3. PAXIL [Suspect]
     Dosage: UNKNOWN
  4. ZOLOFT [Suspect]
     Dosage: UNKNOWN
  5. REMERON [Suspect]
     Dosage: UNKNOWN
  6. CELEXA [Suspect]
     Dosage: UNKNOWN
  7. LUVOX [Suspect]
     Dosage: UNKNOWN
  8. BUSPAR [Suspect]
     Dosage: UNKNOWN
  9. SERZONE [Suspect]
     Dosage: UNKNOWN
  10. RITALIN [Suspect]
     Indication: OBSESSIVE-COMPULSIVE DISORDER
     Dosage: UNKNOWN
  11. BUPROPION HYDROCHLORIDE [Suspect]
     Dosage: UNKNOWN

REACTIONS (14)
  - ANHEDONIA [None]
  - APLASTIC ANAEMIA [None]
  - BRAIN INJURY [None]
  - CARDIOMEGALY [None]
  - COMPLETED SUICIDE [None]
  - DEPRESSED MOOD [None]
  - DRUG WITHDRAWAL SYNDROME [None]
  - HALLUCINATION, AUDITORY [None]
  - HEPATIC FUNCTION ABNORMAL [None]
  - MENTAL IMPAIRMENT [None]
  - PARANOIA [None]
  - POVERTY OF SPEECH [None]
  - SUICIDAL IDEATION [None]
  - SUICIDE ATTEMPT [None]
